FAERS Safety Report 6970864-6 (Version None)
Quarter: 2010Q3

REPORT INFORMATION
  Report Type: 
  Country: None (occurrence: None)
  Receive Date: 20100908
  Receipt Date: 20100831
  Transmission Date: 20110219
  Serious: Yes (Hospitalization, Other)
  Sender: FDA-Public Use
  Company Number: B0670932A

PATIENT
  Sex: Female

DRUGS (4)
  1. PAXIL [Suspect]
     Indication: PANIC DISORDER
     Dosage: 40MG PER DAY
     Route: 048
     Dates: start: 20100412, end: 20100816
  2. SUMATRIPTAN SUCCINATE [Suspect]
     Indication: MIGRAINE
     Dosage: 1IUAX PER DAY
     Route: 048
     Dates: end: 20100816
  3. UNKNOWN DRUG [Concomitant]
     Indication: PANIC DISORDER
     Dosage: 2MG PER DAY
     Route: 048
     Dates: start: 20100412, end: 20100816
  4. DOGMATYL [Concomitant]
     Indication: PANIC DISORDER
     Dosage: 450MG PER DAY
     Route: 048
     Dates: start: 20100412, end: 20100816

REACTIONS (8)
  - ALTERED STATE OF CONSCIOUSNESS [None]
  - DRUG INTERACTION [None]
  - HYPERREFLEXIA [None]
  - METABOLIC ACIDOSIS [None]
  - MUSCLE RIGIDITY [None]
  - PYREXIA [None]
  - SEROTONIN SYNDROME [None]
  - WHITE BLOOD CELL COUNT INCREASED [None]
